FAERS Safety Report 8815676 (Version 1)
Quarter: 2012Q4

REPORT INFORMATION
  Report Type: 
  Country: ES (occurrence: ES)
  Receive Date: 20120928
  Receipt Date: 20120928
  Transmission Date: 20130627
  Serious: Yes (Other)
  Sender: FDA-Public Use
  Company Number: ES-ROXANE LABORATORIES, INC.-2012-RO-01912RO

PATIENT
  Age: 2 Year
  Sex: Female

DRUGS (4)
  1. PREDNISONE [Suspect]
     Indication: NEPHROTIC SYNDROME
  2. CYCLOPHOSPHAMIDE TABLETS USP [Suspect]
     Indication: NEPHROTIC SYNDROME
     Dosage: 40 mg
  3. CICLOSPORIN [Suspect]
     Indication: NEPHROTIC SYNDROME
  4. MYCOPHENOLATE MOFETIL [Suspect]
     Indication: NEPHROTIC SYNDROME
     Route: 048

REACTIONS (7)
  - Drug ineffective [Recovered/Resolved]
  - Fat tissue increased [Unknown]
  - Increased appetite [Unknown]
  - Aggression [Unknown]
  - Hypertrichosis [Unknown]
  - Cushingoid [Unknown]
  - Gastritis [Unknown]
